FAERS Safety Report 9511673 (Version 3)
Quarter: 2013Q4

REPORT INFORMATION
  Report Type: Spontaneous
  Country: US (occurrence: US)
  Receive Date: 20130910
  Receipt Date: 20131007
  Transmission Date: 20140711
  Serious: Yes (Other)
  Sender: FDA-Public Use
  Company Number: US-ASTELLAS-2013US008479

PATIENT
  Age: 23 Year
  Sex: Female

DRUGS (1)
  1. PROGRAF [Suspect]
     Indication: HEART TRANSPLANT
     Dosage: 1 MG, UNKNOWN/D
     Route: 048
     Dates: start: 20111127

REACTIONS (4)
  - Drug ineffective [Unknown]
  - Mitral valve incompetence [Unknown]
  - Ventricular dysfunction [Unknown]
  - Transplant failure [Recovering/Resolving]
